FAERS Safety Report 7214988-7 (Version None)
Quarter: 2011Q1

REPORT INFORMATION
  Report Type: 
  Country: None (occurrence: None)
  Receive Date: 20110107
  Receipt Date: 20100628
  Transmission Date: 20110831
  Serious: No
  Sender: FDA-Public Use
  Company Number: A0867413A

PATIENT
  Age: 77 Year
  Sex: Male

DRUGS (3)
  1. ZOCOR [Concomitant]
  2. EYE DROPS [Concomitant]
  3. LOVAZA [Suspect]
     Indication: HIGH DENSITY LIPOPROTEIN DECREASED
     Dosage: 2G PER DAY
     Route: 048
     Dates: start: 20091228

REACTIONS (1)
  - THERAPEUTIC RESPONSE UNEXPECTED [None]
